FAERS Safety Report 5806619-5 (Version None)
Quarter: 2008Q3

REPORT INFORMATION
  Report Type: 
  Country: None (occurrence: None)
  Receive Date: 20080710
  Receipt Date: 20080630
  Transmission Date: 20090109
  Serious: Yes (Disabling, Other)
  Sender: FDA-Public Use
  Company Number: PHEH2004US03586

PATIENT
  Sex: Female

DRUGS (9)
  1. AREDIA [Suspect]
     Indication: MULTIPLE MYELOMA
     Dosage: 90 MG, QMO
     Route: 042
     Dates: start: 19970601, end: 20010701
  2. PAXIL [Concomitant]
  3. K-DUR [Concomitant]
  4. MS CONTIN [Concomitant]
  5. VINCRISTINE [Concomitant]
  6. ADRIAMYCIN PFS [Concomitant]
  7. CYTOXAN [Concomitant]
  8. PREDNISOLONE [Concomitant]
  9. DECADRON [Concomitant]
     Dosage: ONE DOSE

REACTIONS (7)
  - BONE DISORDER [None]
  - BONE MARROW TRANSPLANT [None]
  - INFECTION [None]
  - JAW OPERATION [None]
  - OSTEONECROSIS [None]
  - PAIN [None]
  - X-RAY DENTAL [None]
